FAERS Safety Report 4977917-2 (Version None)
Quarter: 2006Q2

REPORT INFORMATION
  Report Type: 
  Country: None (occurrence: None)
  Receive Date: 20060420
  Receipt Date: 20060317
  Transmission Date: 20061013
  Serious: Yes (Death, Hospitalization)
  Sender: FDA-Public Use
  Company Number: US-MERCK-0603USA03009

PATIENT
  Age: 82 Year
  Sex: Male
  Weight: 61 kg

DRUGS (18)
  1. VIOXX [Suspect]
     Indication: ARTHRITIS
     Route: 048
     Dates: start: 20000630, end: 20021204
  2. PLAVIX [Concomitant]
     Route: 065
  3. METOPROLOL [Concomitant]
     Route: 065
  4. WARFARIN SODIUM [Concomitant]
     Route: 065
  5. EFFEXOR [Concomitant]
     Route: 065
  6. PREVACID [Concomitant]
     Route: 065
  7. PRAVACHOL [Concomitant]
     Route: 065
  8. ALLEGRA [Concomitant]
     Route: 065
  9. CLARITIN [Concomitant]
     Route: 065
  10. ADALAT CC [Concomitant]
     Route: 065
  11. PROPRANOLOL HYDROCHLORIDE [Concomitant]
     Route: 065
  12. HYDROCHLOROTHIAZIDE [Concomitant]
     Route: 065
  13. PRILOSEC [Concomitant]
     Route: 065
  14. NIFEDIPINE [Concomitant]
     Route: 065
  15. ZOCOR [Concomitant]
     Route: 065
  16. METFORMIN [Concomitant]
     Route: 065
  17. RITALIN [Concomitant]
     Route: 065
  18. GLUCOTROL XL [Concomitant]
     Route: 065

REACTIONS (3)
  - CARDIO-RESPIRATORY ARREST [None]
  - CEREBROVASCULAR ACCIDENT [None]
  - DEPRESSION [None]
